FAERS Safety Report 4348018-1 (Version None)
Quarter: 2004Q2

REPORT INFORMATION
  Report Type: 
  Country: None (occurrence: None)
  Receive Date: 20040422
  Receipt Date: 20040406
  Transmission Date: 20050107
  Serious: Yes (Death, Hospitalization)
  Sender: FDA-Public Use
  Company Number: DSA_24028_2004

PATIENT
  Age: 58 Year
  Sex: Male

DRUGS (7)
  1. MONOTILDIEM 300 [Suspect]
     Indication: HYPERTENSION
     Dosage: 2700 MG ONCE PO
     Route: 048
     Dates: start: 20040202, end: 20040202
  2. TILDIEM [Suspect]
     Indication: HYPERTENSION
     Dosage: 60 MG Q DAY PO
     Route: 048
  3. DAONIL [Concomitant]
  4. GLUCOR [Concomitant]
  5. KARDEGIC [Concomitant]
  6. ZESTRIL [Concomitant]
  7. ELISOR [Concomitant]

REACTIONS (5)
  - CARDIOGENIC SHOCK [None]
  - COMA [None]
  - COMPLETED SUICIDE [None]
  - HAEMODIALYSIS [None]
  - INTENTIONAL OVERDOSE [None]
